FAERS Safety Report 4640370-2 (Version None)
Quarter: 2005Q2

REPORT INFORMATION
  Report Type: 
  Country: None (occurrence: None)
  Receive Date: 20050420
  Receipt Date: 20050120
  Transmission Date: 20051028
  Serious: No
  Sender: FDA-Public Use
  Company Number: US-GLAXOSMITHKLINE-A0541555A

PATIENT
  Age: 13 Year
  Sex: Female

DRUGS (2)
  1. ESKALITH [Suspect]
     Indication: DEPRESSION
     Route: 048
     Dates: start: 20041101
  2. CLONIDINE [Concomitant]

REACTIONS (2)
  - MOOD SWINGS [None]
  - OEDEMA [None]
